FAERS Safety Report 15613216 (Version 2)
Quarter: 2018Q4

REPORT INFORMATION
  Report Type: Spontaneous
  Country: ES (occurrence: ES)
  Receive Date: 20181113
  Receipt Date: 20181127
  Transmission Date: 20190205
  Serious: Yes (Other)
  Sender: FDA-Public Use
  Company Number: ES-PFIZER INC-2018460814

PATIENT
  Age: 63 Year
  Sex: Male

DRUGS (12)
  1. ZOLEDRONIC ACID [Suspect]
     Active Substance: ZOLEDRONIC ACID
     Indication: PARAGANGLION NEOPLASM
     Dosage: 4 MG, CYCLIC, (EVERY 28 DAY)
     Dates: start: 201512, end: 201702
  2. LANREOTIDE [Suspect]
     Active Substance: LANREOTIDE
     Indication: PARAGANGLION NEOPLASM
     Dosage: 120 MG, CYCLIC (EVERY 14 DAY)
     Dates: start: 201512, end: 201702
  3. ZOLEDRONIC ACID [Suspect]
     Active Substance: ZOLEDRONIC ACID
     Dosage: 4 MG, CYCLIC, (RESTARTED AFTER 2 WEEKS, SAME DOSE BUT WITH PROLONGATION OF THE COURSES TO 5 WEEKS)
     Dates: start: 201703
  4. TEMOZOLOMIDE. [Suspect]
     Active Substance: TEMOZOLOMIDE
     Indication: PHAEOCHROMOCYTOMA
     Dosage: 75 MG/M2, DAILY, (WITH A SCHEDULE OF 3 WEEKS ON TREATMENT FOLLOWED BY 1 WEEK OFF TREATMENT (21/28-DA
     Dates: start: 201512, end: 201702
  5. HYDROCHLOROTHIAZIDE/OLMESARTAN [Concomitant]
     Indication: HYPERTENSION
     Dosage: UNK, DAILY, (COMBINATION OF OLMESARTAN 20 MG AND HYDROCHLOROTHIAZIDE 12.5 MG DAILY)
  6. ZOLEDRONIC ACID [Suspect]
     Active Substance: ZOLEDRONIC ACID
     Indication: PHAEOCHROMOCYTOMA
     Dosage: 4 MG, CYCLIC, (EVERY 28 DAY)
     Dates: start: 201502
  7. SOMATULINE AUTOGEL [Concomitant]
     Active Substance: LANREOTIDE ACETATE
     Indication: PHAEOCHROMOCYTOMA
     Dosage: UNK, (EXTENDED-RELEASE LANREOTIDE (SOMATULINE AUTOGEL) AT A DOSE OF 120 MG EVERY 14 DAYS)
     Dates: start: 201502
  8. LANREOTIDE [Suspect]
     Active Substance: LANREOTIDE
     Indication: PHAEOCHROMOCYTOMA
     Dosage: 120 MG, CYCLIC (EVERY 14 DAY)
     Dates: start: 201502
  9. LANREOTIDE [Suspect]
     Active Substance: LANREOTIDE
     Dosage: 120 MG, CYCLIC, (RESTARTED AFTER 2 WEEKS, SAME DOSE BUT WITH PROLONGATION OF THE COURSES TO 5 WEEKS)
     Dates: start: 201703
  10. TEMOZOLOMIDE. [Suspect]
     Active Substance: TEMOZOLOMIDE
     Indication: PARAGANGLION NEOPLASM
     Dosage: 75 MG/M2, DAILY, (RESTARTED AFTER 2 WEEKS, SAME DOSE BUT WITH PROLONGATION OF THE COURSES TO 5 WEEKS
     Dates: start: 201703
  11. FENTANYL. [Concomitant]
     Active Substance: FENTANYL
     Indication: PAIN
     Dosage: UNK, (200 ?G EVERY 3 DAYS)
     Route: 062
  12. SOMATULINE AUTOGEL [Concomitant]
     Active Substance: LANREOTIDE ACETATE
     Indication: PARAGANGLION NEOPLASM

REACTIONS (1)
  - Lymphopenia [Unknown]

NARRATIVE: CASE EVENT DATE: 201702
